FAERS Safety Report 23631158 (Version 2)
Quarter: 2024Q2

REPORT INFORMATION
  Report Type: Report from Study
  Country: US (occurrence: US)
  Receive Date: 20240314
  Receipt Date: 20240415
  Transmission Date: 20240716
  Serious: Yes (Hospitalization, Other)
  Sender: FDA-Public Use
  Company Number: US-SUN PHARMACEUTICAL INDUSTRIES LTD-2024R1-436145

PATIENT
  Sex: Male

DRUGS (1)
  1. CLOZAPINE [Suspect]
     Active Substance: CLOZAPINE
     Indication: Product used for unknown indication
     Dosage: 75 MILLIGRAM, QD ONCE A NIGHT
     Route: 065

REACTIONS (5)
  - Asthenia [Unknown]
  - Unresponsive to stimuli [Unknown]
  - Amnesia [Unknown]
  - Fall [Unknown]
  - Parkinson^s disease [Unknown]
